FAERS Safety Report 6111595-4 (Version None)
Quarter: 2009Q1

REPORT INFORMATION
  Report Type: 
  Country: None (occurrence: None)
  Receive Date: 20090311
  Receipt Date: 20090305
  Transmission Date: 20090719
  Serious: Yes (Other)
  Sender: FDA-Public Use
  Company Number: IN-MERCK-0903USA00883

PATIENT

DRUGS (1)
  1. DECADRON [Suspect]
     Indication: THROMBOCYTOPENIC PURPURA
     Route: 048

REACTIONS (2)
  - DRUG INEFFECTIVE [None]
  - HAEMORRHAGE INTRACRANIAL [None]
